FAERS Safety Report 6541819-0 (Version None)
Quarter: 2010Q1

REPORT INFORMATION
  Report Type: 
  Country: None (occurrence: None)
  Receive Date: 20100119
  Receipt Date: 20100108
  Transmission Date: 20100710
  Serious: Yes (Hospitalization)
  Sender: FDA-Public Use
  Company Number: PHHY2010US01210

PATIENT
  Sex: Male
  Weight: 115.2 kg

DRUGS (3)
  1. EXJADE [Suspect]
     Indication: ACUTE LYMPHOCYTIC LEUKAEMIA
     Dosage: 2250 MG, QD
     Route: 048
  2. EXJADE [Suspect]
     Indication: IRON OVERLOAD
  3. CHEMOTHERAPEUTICS NOS [Concomitant]

REACTIONS (2)
  - CHEST PAIN [None]
  - WEIGHT ABNORMAL [None]
